FAERS Safety Report 6929755-9 (Version None)
Quarter: 2010Q3

REPORT INFORMATION
  Report Type: 
  Country: None (occurrence: None)
  Receive Date: 20100818
  Receipt Date: 20100809
  Transmission Date: 20110219
  Serious: Yes (Other)
  Sender: FDA-Public Use
  Company Number: FR-ASTRAZENECA-2010SE38063

PATIENT
  Age: 0 Week

DRUGS (3)
  1. RHINOCORT [Suspect]
     Indication: BRONCHITIS
     Dates: start: 20100604
  2. CEFUROXIME [Suspect]
     Indication: BRONCHITIS
     Dates: start: 20100604, end: 20100611
  3. REVAXIS [Suspect]
     Indication: IMMUNISATION
     Dosage: ONE SINGLE DOSE
     Dates: start: 20100422

REACTIONS (1)
  - LIMB REDUCTION DEFECT [None]
